FAERS Safety Report 14392396 (Version 1)
Quarter: 2018Q1

REPORT INFORMATION
  Report Type: Spontaneous
  Country: CA (occurrence: CA)
  Receive Date: 20180116
  Receipt Date: 20180116
  Transmission Date: 20180509
  Serious: Yes (Hospitalization, Other)
  Sender: FDA-Public Use
  Company Number: CA-OTSUKA-2018_000241

PATIENT

DRUGS (4)
  1. LAMOTRIGINE. [Suspect]
     Active Substance: LAMOTRIGINE
     Indication: BIPOLAR DISORDER
     Dosage: 250 MG, QD
     Route: 063
  2. ABILIFY [Suspect]
     Active Substance: ARIPIPRAZOLE
     Indication: BIPOLAR DISORDER
     Dosage: 15 MG, QD
     Route: 063
  3. SERTRALINE [Suspect]
     Active Substance: SERTRALINE HYDROCHLORIDE
     Indication: BIPOLAR DISORDER
     Dosage: 100 MG, QD
     Route: 063
  4. LEVOTHYROXINE. [Concomitant]
     Active Substance: LEVOTHYROXINE
     Indication: PRODUCT USED FOR UNKNOWN INDICATION
     Dosage: UNK
     Route: 065

REACTIONS (9)
  - Disseminated intravascular coagulation [Recovered/Resolved]
  - Partial seizures [Recovered/Resolved]
  - Gangrene [Recovered/Resolved]
  - Acidosis [Recovered/Resolved]
  - Rhabdomyolysis [Recovered/Resolved]
  - Hypovolaemic shock [Recovered/Resolved]
  - Maternal exposure during breast feeding [Unknown]
  - Renal failure [Recovered/Resolved]
  - Dehydration [Recovered/Resolved]
